FAERS Safety Report 8225195-3 (Version None)
Quarter: 2012Q1

REPORT INFORMATION
  Report Type: 
  Country: None (occurrence: None)
  Receive Date: 20120321
  Receipt Date: 20120316
  Transmission Date: 20120608
  Serious: Yes (Hospitalization)
  Sender: FDA-Public Use
  Company Number: DE-MERCK-1203DEU00097

PATIENT
  Age: 76 Year
  Sex: Male

DRUGS (1)
  1. VYTORIN [Suspect]
     Indication: CORONARY ARTERY STENOSIS
     Route: 048
     Dates: start: 20110101

REACTIONS (4)
  - DIABETIC NEUROPATHY [None]
  - AUTONOMIC NEUROPATHY [None]
  - CEREBROVASCULAR ACCIDENT [None]
  - TRANSIENT ISCHAEMIC ATTACK [None]
